FAERS Safety Report 17451671 (Version 2)
Quarter: 2020Q1

REPORT INFORMATION
  Report Type: Spontaneous
  Country: US (occurrence: US)
  Receive Date: 20200224
  Receipt Date: 20200226
  Transmission Date: 20200409
  Serious: Yes (Other)
  Sender: FDA-Public Use
  Company Number: US-PFIZER INC-2020080116

PATIENT
  Sex: Female

DRUGS (1)
  1. ALPRAZOLAM. [Suspect]
     Active Substance: ALPRAZOLAM
     Dosage: 4 MG, 2X/DAY (2 TABLETS IN THE MORNING AND 2 TABLETS AT BEDTIME)

REACTIONS (6)
  - Hallucination [Unknown]
  - Withdrawal syndrome [Unknown]
  - Myalgia [Unknown]
  - Disturbance in attention [Unknown]
  - Intervertebral disc disorder [Unknown]
  - Muscle spasms [Unknown]
